FAERS Safety Report 20182844 (Version 3)
Quarter: 2022Q1

REPORT INFORMATION
  Report Type: Report from Study
  Country: US (occurrence: US)
  Receive Date: 20211214
  Receipt Date: 20220120
  Transmission Date: 20220424
  Serious: Yes (Hospitalization)
  Sender: FDA-Public Use
  Company Number: US-EXELIXIS-CABO-21042349

PATIENT
  Age: 43 Year
  Sex: Male

DRUGS (22)
  1. CABOMETYX [Suspect]
     Active Substance: CABOZANTINIB S-MALATE
     Indication: Clear cell renal cell carcinoma
     Dosage: 40 MG
     Route: 048
     Dates: start: 20210613, end: 20210702
  2. CABOMETYX [Suspect]
     Active Substance: CABOZANTINIB S-MALATE
     Dosage: 40 MG
     Route: 048
     Dates: start: 202107, end: 20210704
  3. CABOMETYX [Suspect]
     Active Substance: CABOZANTINIB S-MALATE
     Dosage: 20 MG, QD
     Route: 048
     Dates: start: 20210710, end: 20211106
  4. CABOMETYX [Suspect]
     Active Substance: CABOZANTINIB S-MALATE
     Dosage: 20 MG, QD
     Route: 048
     Dates: start: 202111, end: 202111
  5. CABOMETYX [Suspect]
     Active Substance: CABOZANTINIB S-MALATE
     Dosage: 20 MG, QD
     Route: 048
     Dates: start: 20211118, end: 20211221
  6. CABOMETYX [Suspect]
     Active Substance: CABOZANTINIB S-MALATE
     Dosage: 20 MG
     Route: 048
     Dates: start: 20211227
  7. NIVOLUMAB [Suspect]
     Active Substance: NIVOLUMAB
     Indication: Renal cancer
     Dosage: UNK
     Dates: start: 20210613
  8. ERGOCALCIFEROL [Concomitant]
     Active Substance: ERGOCALCIFEROL
  9. MIRALAX [Concomitant]
     Active Substance: POLYETHYLENE GLYCOL 3350
  10. HYDROMORPHONE [Concomitant]
     Active Substance: HYDROMORPHONE
     Indication: Pain
  11. GUAIFENESIN [Concomitant]
     Active Substance: GUAIFENESIN
  12. NIFEDIPINE [Concomitant]
     Active Substance: NIFEDIPINE
  13. AMOXICILLIN AND CLAVULANATE POTASSIUM [Concomitant]
     Active Substance: AMOXICILLIN\CLAVULANATE POTASSIUM
  14. CLINDAMYCIN [Concomitant]
     Active Substance: CLINDAMYCIN
  15. HYDROCORTISONE [Concomitant]
     Active Substance: HYDROCORTISONE
  16. BENZOYL PEROXIDE [Concomitant]
     Active Substance: BENZOYL PEROXIDE
  17. MUPIROCIN [Concomitant]
     Active Substance: MUPIROCIN
  18. CLOBETASOL [Concomitant]
     Active Substance: CLOBETASOL
  19. CHOLECALCIFEROL [Concomitant]
     Active Substance: CHOLECALCIFEROL
  20. SILVADENE [Concomitant]
     Active Substance: SILVER SULFADIAZINE
  21. LOSARTAN [Concomitant]
     Active Substance: LOSARTAN
  22. TYLENOL [Concomitant]
     Active Substance: ACETAMINOPHEN

REACTIONS (27)
  - Catheter site rash [Unknown]
  - Infectious pleural effusion [Unknown]
  - COVID-19 [Recovering/Resolving]
  - Catheter site inflammation [Recovering/Resolving]
  - Malignant pleural effusion [Recovered/Resolved]
  - Atelectasis [Unknown]
  - Lung consolidation [Unknown]
  - Pneumothorax [Unknown]
  - Blister [Recovering/Resolving]
  - Genital erosion [Unknown]
  - Tachycardia [Recovered/Resolved]
  - Dermatitis bullous [Unknown]
  - Dermatitis psoriasiform [Recovering/Resolving]
  - Abdominal distension [Unknown]
  - Skin erosion [Recovering/Resolving]
  - Hypovolaemia [Recovered/Resolved]
  - Monocyte count increased [Unknown]
  - Eosinophil count increased [Unknown]
  - Red cell distribution width increased [Unknown]
  - Blood pressure increased [Recovering/Resolving]
  - Hypotension [Unknown]
  - Hyponatraemia [Recovering/Resolving]
  - Anaemia [Unknown]
  - White blood cell count decreased [Unknown]
  - Lymphocyte count decreased [Unknown]
  - Blood alkaline phosphatase increased [Unknown]
  - Blood albumin decreased [Unknown]

NARRATIVE: CASE EVENT DATE: 20210627
